FAERS Safety Report 8516390-4 (Version None)
Quarter: 2012Q3

REPORT INFORMATION
  Report Type: 
  Country: None (occurrence: None)
  Receive Date: 20120718
  Receipt Date: 20120709
  Transmission Date: 20120928
  Serious: No
  Sender: FDA-Public Use
  Company Number: US-BIOGENIDEC-2012BI023376

PATIENT
  Sex: Male

DRUGS (1)
  1. AVONEX [Suspect]
     Indication: MULTIPLE SCLEROSIS
     Route: 030
     Dates: start: 19990427

REACTIONS (11)
  - DYSGRAPHIA [None]
  - COORDINATION ABNORMAL [None]
  - FALL [None]
  - HYPERHIDROSIS [None]
  - ASTHENIA [None]
  - MEMORY IMPAIRMENT [None]
  - FEELING ABNORMAL [None]
  - INSOMNIA [None]
  - DIZZINESS [None]
  - ANXIETY [None]
  - CONFUSIONAL STATE [None]
